FAERS Safety Report 12878240 (Version 4)
Quarter: 2020Q1

REPORT INFORMATION
  Report Type: Report from Study
  Country: US (occurrence: US)
  Receive Date: 20161024
  Receipt Date: 20200224
  Transmission Date: 20200409
  Serious: Yes (Other)
  Sender: FDA-Public Use
  Company Number: PHHY2016US143968

PATIENT
  Age: 49 Year
  Sex: Female

DRUGS (1)
  1. GILENYA [Suspect]
     Active Substance: FINGOLIMOD HYDROCHLORIDE
     Indication: MULTIPLE SCLEROSIS
     Dosage: UNK, QD
     Route: 048

REACTIONS (13)
  - Arthritis [Not Recovered/Not Resolved]
  - Blood alkaline phosphatase decreased [Unknown]
  - Balance disorder [Unknown]
  - Affect lability [Recovered/Resolved]
  - Visual field defect [Not Recovered/Not Resolved]
  - Anxiety [Not Recovered/Not Resolved]
  - Visual field defect [Recovered/Resolved]
  - Alanine aminotransferase increased [Recovered/Resolved]
  - Pericardial effusion [Not Recovered/Not Resolved]
  - Diastolic dysfunction [Not Recovered/Not Resolved]
  - Lymphocyte count decreased [Unknown]
  - High density lipoprotein increased [Unknown]
  - Paraesthesia [Not Recovered/Not Resolved]

NARRATIVE: CASE EVENT DATE: 20140722
